FAERS Safety Report 25060617 (Version 7)
Quarter: 2025Q3

REPORT INFORMATION
  Report Type: Report from Study
  Country: CA (occurrence: CA)
  Receive Date: 20250310
  Receipt Date: 20250923
  Transmission Date: 20251021
  Serious: Yes (Other)
  Sender: TAKEDA
  Company Number: CA-TAKEDA-2025TUS022993

PATIENT
  Age: 30 Year
  Sex: Female
  Weight: 58.97 kg

DRUGS (6)
  1. VEDOLIZUMAB [Suspect]
     Active Substance: VEDOLIZUMAB
     Indication: Colitis ulcerative
  2. VEDOLIZUMAB [Suspect]
     Active Substance: VEDOLIZUMAB
  3. VEDOLIZUMAB [Suspect]
     Active Substance: VEDOLIZUMAB
  4. VEDOLIZUMAB [Suspect]
     Active Substance: VEDOLIZUMAB
     Dosage: 300 MILLIGRAM, Q4WEEKS
     Dates: start: 20250717
  5. Cortiment [Concomitant]
  6. SULFASALAZINE [Concomitant]
     Active Substance: SULFASALAZINE

REACTIONS (11)
  - Haematochezia [Unknown]
  - Abortion spontaneous [Recovered/Resolved]
  - Colitis ulcerative [Unknown]
  - Retained products of conception [Unknown]
  - Diverticulitis [Unknown]
  - Impaired work ability [Unknown]
  - Frequent bowel movements [Unknown]
  - Social problem [Unknown]
  - Large intestine polyp [Unknown]
  - Off label use [Recovered/Resolved]
  - Pregnancy [Recovered/Resolved]

NARRATIVE: CASE EVENT DATE: 20250223
